FAERS Safety Report 5852537-6 (Version None)
Quarter: 2008Q3

REPORT INFORMATION
  Report Type: 
  Country: None (occurrence: None)
  Receive Date: 20080820
  Receipt Date: 20080820
  Transmission Date: 20090109
  Serious: Yes (Life-Threatening)
  Sender: FDA-Public Use
  Company Number: None

PATIENT
  Age: 57 Year
  Sex: Female

DRUGS (1)
  1. AVELOX [Suspect]
     Dosage: 400 MG DAILY PO
     Route: 048
     Dates: start: 20071210, end: 20071211

REACTIONS (2)
  - PRURITUS [None]
  - RASH MACULO-PAPULAR [None]
